APPROVED DRUG PRODUCT: CISPLATIN
Active Ingredient: CISPLATIN
Strength: 1MG/ML
Dosage Form/Route: INJECTABLE;INJECTION
Application: N018057 | Product #004 | TE Code: AP
Applicant: HQ SPECIALTY PHARMA CORP
Approved: Nov 8, 1988 | RLD: Yes | RS: No | Type: RX